FAERS Safety Report 5682595-3 (Version None)
Quarter: 2008Q1

REPORT INFORMATION
  Report Type: 
  Country: None (occurrence: None)
  Receive Date: 20080327
  Receipt Date: 20080102
  Transmission Date: 20080703
  Serious: No
  Sender: FDA-Public Use
  Company Number: US-BRISTOL-MYERS SQUIBB COMPANY-14028302

PATIENT
  Age: 67 Year
  Sex: Female
  Weight: 77 kg

DRUGS (6)
  1. ORENCIA [Suspect]
     Indication: RHEUMATOID ARTHRITIS
     Dosage: LAST DOSE 21DEC07
     Dates: start: 20070101, end: 20071221
  2. LISINOPRIL [Concomitant]
  3. HYDROCHLOROTHIAZIDE [Concomitant]
  4. SULAR [Concomitant]
  5. RELAFEN [Concomitant]
  6. VITAMINS [Concomitant]

REACTIONS (1)
  - COUGH [None]
